FAERS Safety Report 6899356-X (Version None)
Quarter: 2010Q3

REPORT INFORMATION
  Report Type: 
  Country: None (occurrence: None)
  Receive Date: 20100803
  Receipt Date: 20090409
  Transmission Date: 20110219
  Serious: No
  Sender: FDA-Public Use
  Company Number: US-PFIZER INC-2009174161

PATIENT
  Sex: Female

DRUGS (5)
  1. NORVASC [Suspect]
  2. TIKOSYN [Suspect]
  3. FELODIPINE [Suspect]
  4. DYNACIRC [Suspect]
     Dosage: UNK
  5. BENICAR [Concomitant]

REACTIONS (2)
  - HEART RATE DECREASED [None]
  - OEDEMA [None]
